FAERS Safety Report 6557106-0 (Version None)
Quarter: 2010Q1

REPORT INFORMATION
  Report Type: 
  Country: None (occurrence: None)
  Receive Date: 20100128
  Receipt Date: 20100119
  Transmission Date: 20100710
  Serious: Yes (Other)
  Sender: FDA-Public Use
  Company Number: BR-AMGEN-US383205

PATIENT
  Age: 35 Year
  Sex: Male

DRUGS (2)
  1. ENBREL [Suspect]
     Indication: ANKYLOSING SPONDYLITIS
     Dosage: 50 MG FREQUENCY UNKNOWN
     Route: 058
  2. PROPRANOLOL [Concomitant]
     Dosage: NOT SPECIFIED

REACTIONS (5)
  - ARRHYTHMIA [None]
  - DIZZINESS [None]
  - HYPOTENSION [None]
  - SOMNOLENCE [None]
  - VISUAL IMPAIRMENT [None]
